FAERS Safety Report 16009846 (Version 3)
Quarter: 2019Q3

REPORT INFORMATION
  Report Type: Spontaneous
  Country: DE (occurrence: DE)
  Receive Date: 20190227
  Receipt Date: 20190928
  Transmission Date: 20191004
  Serious: Yes (Other)
  Sender: FDA-Public Use
  Company Number: DE-BRISTOL-MYERS SQUIBB COMPANY-BMS-2019-018169

PATIENT
  Sex: Male
  Weight: 86 kg

DRUGS (5)
  1. HYDROXYUREA. [Suspect]
     Active Substance: HYDROXYUREA
     Indication: POLYCYTHAEMIA VERA
     Dosage: 500 MG, UNK, ONCE DAY 1-5, TWICE DAY 6 PLUS 7
     Route: 048
     Dates: start: 201505, end: 201606
  2. HYDROXYUREA. [Suspect]
     Active Substance: HYDROXYUREA
     Indication: PRODUCT USED FOR UNKNOWN INDICATION
     Dosage: 1000 MILLIGRAM, QD
     Route: 048
     Dates: start: 201502, end: 201505
  3. VALSACOR [Concomitant]
     Active Substance: VALSARTAN
     Indication: PRODUCT USED FOR UNKNOWN INDICATION
     Dosage: 1 DOSAGE FORM
     Route: 065
  4. HYDROXYUREA. [Suspect]
     Active Substance: HYDROXYUREA
     Indication: PRODUCT USED FOR UNKNOWN INDICATION
     Dosage: 500 MG, UNK, TWICE WEDNESDAY AND SUNDAY, ONCE ON OTHER DAYS
     Route: 048
     Dates: start: 201608, end: 201701
  5. ASPIRIN. [Concomitant]
     Active Substance: ASPIRIN
     Indication: PRODUCT USED FOR UNKNOWN INDICATION
     Dosage: 1 DOSAGE FORM
     Route: 065

REACTIONS (17)
  - Recurrent cancer [Unknown]
  - Haematocrit increased [Unknown]
  - Drug intolerance [Unknown]
  - Nausea [Unknown]
  - Emphysema [Unknown]
  - Head discomfort [Unknown]
  - Thrombocytosis [Unknown]
  - Cardiac murmur [Unknown]
  - Cerebrovascular disorder [Unknown]
  - Abnormal faeces [Unknown]
  - Hypertension [Unknown]
  - Headache [Unknown]
  - Therapeutic product effect incomplete [Unknown]
  - Pruritus generalised [Unknown]
  - Feeling abnormal [Unknown]
  - Oedema peripheral [Unknown]
  - Malignant melanoma [Unknown]

NARRATIVE: CASE EVENT DATE: 201610
